FAERS Safety Report 21529157 (Version 1)
Quarter: 2022Q4

REPORT INFORMATION
  Report Type: Spontaneous
  Country: US (occurrence: US)
  Receive Date: 20221031
  Receipt Date: 20221031
  Transmission Date: 20230112
  Serious: No
  Sender: FDA-Public Use
  Company Number: US-TEVA-2022-US-2082291

PATIENT
  Sex: Female

DRUGS (6)
  1. AJOVY [Suspect]
     Active Substance: FREMANEZUMAB-VFRM
     Indication: Migraine
     Dosage: STRENGTH: 225 MG,DOSAGE: 15; ONCE EVERY 28 DAYS
     Dates: start: 20211231
  2. AJOVY [Suspect]
     Active Substance: FREMANEZUMAB-VFRM
  3. NURTEC ODT [Concomitant]
     Active Substance: RIMEGEPANT SULFATE
     Indication: Product used for unknown indication
     Dosage: OD
  4. Zolmitripan [Concomitant]
     Indication: Product used for unknown indication
     Dosage: OT
  5. EFFEXOR [Concomitant]
     Active Substance: VENLAFAXINE HYDROCHLORIDE
     Indication: Product used for unknown indication
  6. ziolfan [Concomitant]
     Indication: Product used for unknown indication

REACTIONS (2)
  - Migraine [Unknown]
  - Product dose omission issue [Unknown]
